FAERS Safety Report 13649807 (Version 1)
Quarter: 2017Q2

REPORT INFORMATION
  Report Type: Spontaneous
  Country: AU (occurrence: AU)
  Receive Date: 20170614
  Receipt Date: 20170614
  Transmission Date: 20170830
  Serious: Yes (Hospitalization, Other)
  Sender: FDA-Public Use
  Company Number: AU-ENDO PHARMACEUTICALS INC-2017-003308

PATIENT
  Age: 44 Year
  Sex: Female

DRUGS (2)
  1. PROPYLTHIOURACIL TABLETS 50 MG [Suspect]
     Active Substance: PROPYLTHIOURACIL
     Indication: BASEDOW^S DISEASE
     Dosage: UNK UNK, UNKNOWN
     Route: 065
  2. ATENOLOL. [Concomitant]
     Active Substance: ATENOLOL
     Indication: BASEDOW^S DISEASE
     Dosage: UNK UNK, UNKNOWN
     Route: 065

REACTIONS (2)
  - Antineutrophil cytoplasmic antibody increased [Unknown]
  - Pyoderma gangrenosum [Recovered/Resolved]
